FAERS Safety Report 11916189 (Version 1)
Quarter: 2016Q1

REPORT INFORMATION
  Report Type: Spontaneous
  Country: US (occurrence: US)
  Receive Date: 20160114
  Receipt Date: 20160114
  Transmission Date: 20160526
  Serious: No
  Sender: FDA-Public Use
  Company Number: US-GLAXOSMITHKLINE-US2015GSK184273

PATIENT
  Sex: Female

DRUGS (4)
  1. PNEUMOCOCCAL VACCINE POLYVALENT NOS [Suspect]
     Active Substance: PNEUMOCOCCAL VACCINE POLYVALENT
     Indication: PROPHYLAXIS
     Dates: start: 2015, end: 2015
  2. ADVAIR DISKUS [Suspect]
     Active Substance: FLUTICASONE PROPIONATE\SALMETEROL XINAFOATE
     Indication: PNEUMONIA
  3. SEASONAL INFLUENZA VACCINE SOLUTION FOR INJECTION [Suspect]
     Active Substance: INFLUENZA VIRUS VACCINE
     Indication: PROPHYLAXIS
     Dates: start: 2015, end: 2015
  4. ADVAIR DISKUS [Suspect]
     Active Substance: FLUTICASONE PROPIONATE\SALMETEROL XINAFOATE
     Indication: ASTHMA
     Dosage: 500 ?G, UNK

REACTIONS (5)
  - Feeling abnormal [Unknown]
  - Respiratory disorder [Unknown]
  - Malaise [Unknown]
  - Inflammation [Unknown]
  - Bronchitis [Unknown]

NARRATIVE: CASE EVENT DATE: 2015
